FAERS Safety Report 7573263-1 (Version None)
Quarter: 2011Q2

REPORT INFORMATION
  Report Type: 
  Country: None (occurrence: None)
  Receive Date: 20110627
  Receipt Date: 20110613
  Transmission Date: 20111010
  Serious: Yes (Other)
  Sender: FDA-Public Use
  Company Number: PHHY2011CA42709

PATIENT
  Sex: Female

DRUGS (7)
  1. GABAPENTIN [Concomitant]
     Dosage: 400 MG, Q18H
  2. ZOLEDRONIC ACID [Suspect]
     Indication: OSTEOPOROSIS
     Dosage: 5 MG,
     Route: 042
     Dates: start: 20100614
  3. VITAMIN D [Concomitant]
     Dosage: 10000 IU,
  4. PRAVASTATIN [Concomitant]
     Dosage: 20 MG, HS
  5. DOCUSATE [Concomitant]
     Dosage: 100 MG, 2 CAP BID TO QID
  6. COZAAR [Concomitant]
     Dosage: 100 MG, AM
  7. AMITRIPTYLINE HCL [Concomitant]
     Dosage: 10 MG, HS

REACTIONS (1)
  - BREAST CANCER [None]
